FAERS Safety Report 21656077 (Version 2)
Quarter: 2022Q4

REPORT INFORMATION
  Report Type: Spontaneous
  Country: US (occurrence: US)
  Receive Date: 20221129
  Receipt Date: 20221202
  Transmission Date: 20230113
  Serious: Yes (Other)
  Sender: FDA-Public Use
  Company Number: US-APOTEX-2022AP015198

PATIENT
  Sex: Female
  Weight: 65.77 kg

DRUGS (8)
  1. GLIPIZIDE [Suspect]
     Active Substance: GLIPIZIDE
     Indication: Type 2 diabetes mellitus
     Dosage: 10 MG IN THE MORNING AND 5MG IN THE AFTERNOON
     Route: 065
  2. GLIPIZIDE [Suspect]
     Active Substance: GLIPIZIDE
     Dosage: 10 MILLIGRAM, BID
     Route: 065
  3. GLIPIZIDE [Suspect]
     Active Substance: GLIPIZIDE
     Dosage: 5 MILLIGRAM, BID
     Route: 065
  4. GLIPIZIDE [Suspect]
     Active Substance: GLIPIZIDE
     Dosage: 10 MILLIGRAM, BID
     Route: 065
  5. COVID-19 VACCINE [Concomitant]
     Indication: Prophylaxis
     Dosage: UNK
     Route: 065
  6. COVID-19 VACCINE [Concomitant]
     Dosage: UNK
     Route: 065
     Dates: start: 20210730
  7. COVID-19 VACCINE [Concomitant]
     Dosage: BOOSTER DOSE, UNK
     Route: 065
     Dates: start: 20220119
  8. METFORMIN [Concomitant]
     Active Substance: METFORMIN HYDROCHLORIDE
     Indication: Diabetes mellitus
     Dosage: 1000 MILLIGRAM, BID
     Route: 065

REACTIONS (8)
  - Chest injury [Unknown]
  - Energy increased [Unknown]
  - Hypoglycaemia [Unknown]
  - Arthralgia [Unknown]
  - Chest pain [Unknown]
  - Fall [Unknown]
  - Intentional product use issue [Unknown]
  - Drug ineffective [Unknown]
